FAERS Safety Report 9295252 (Version 2)
Quarter: 2013Q2

REPORT INFORMATION
  Report Type: Spontaneous
  Country: US (occurrence: None)
  Receive Date: 20121227
  Receipt Date: 20130507
  Transmission Date: 20140414
  Serious: Yes (Other)
  Sender: FDA-Public Use
  Company Number: PHEH2012US020283

PATIENT
  Age: 6 Year
  Sex: Male

DRUGS (2)
  1. AFINITOR (RAD) UNKNOWN [Suspect]
     Indication: TUBEROUS SCLEROSIS
     Route: 048
     Dates: start: 20120927, end: 20130119
  2. KEPPRA (LEVETIRACETAM) [Concomitant]

REACTIONS (4)
  - Body temperature increased [None]
  - Decreased appetite [None]
  - Influenza [None]
  - Ear infection [None]
